FAERS Safety Report 18725662 (Version 2)
Quarter: 2021Q3

REPORT INFORMATION
  Report Type: Spontaneous
  Country: US (occurrence: US)
  Receive Date: 20210111
  Receipt Date: 20210903
  Transmission Date: 20211014
  Serious: Yes (Death, Life-Threatening, Hospitalization)
  Sender: FDA-Public Use
  Company Number: US-MYLANLABS-2021M1000862

PATIENT
  Age: 31 Year
  Sex: Male
  Weight: 83 kg

DRUGS (8)
  1. FERROUS SULFATE. [Suspect]
     Active Substance: FERROUS SULFATE
     Indication: PRODUCT USED FOR UNKNOWN INDICATION
     Dosage: 100 DOSAGE FORM, TOTAL TABLET
     Route: 048
  2. DEFEROXAMINE [Suspect]
     Active Substance: DEFEROXAMINE MESYLATE
     Indication: PRODUCT USED FOR UNKNOWN INDICATION
     Dosage: UNK
     Route: 042
  3. PHENYLEPHRINE [Suspect]
     Active Substance: PHENYLEPHRINE HYDROCHLORIDE
     Indication: HYPOTENSION
     Dosage: UNK
  4. CHARCOAL [Concomitant]
     Active Substance: ACTIVATED CHARCOAL
     Indication: PRODUCT USED FOR UNKNOWN INDICATION
     Dosage: 50 GRAM
     Route: 048
  5. NOREPINEPHRINE. [Suspect]
     Active Substance: NOREPINEPHRINE
     Indication: HYPOTENSION
     Dosage: UNK
  6. VASOPRESSIN. [Suspect]
     Active Substance: VASOPRESSIN
     Indication: HYPOTENSION
     Dosage: UNK
  7. ACETAMINOPHEN. [Suspect]
     Active Substance: ACETAMINOPHEN
     Indication: PRODUCT USED FOR UNKNOWN INDICATION
     Dosage: 100 DOSAGE FORM, TOTAL TABLET
     Route: 048
  8. ACETYLCYSTEINE. [Suspect]
     Active Substance: ACETYLCYSTEINE
     Indication: INTENTIONAL OVERDOSE
     Dosage: UNK
     Route: 042

REACTIONS (15)
  - Somnolence [Unknown]
  - Acute kidney injury [Unknown]
  - Drug ineffective [Unknown]
  - Intentional overdose [Fatal]
  - Haemodynamic instability [Unknown]
  - Toxicity to various agents [Fatal]
  - Acute hepatic failure [Fatal]
  - Unresponsive to stimuli [Unknown]
  - Abdominal pain [Unknown]
  - Acidosis [Unknown]
  - Vomiting [Unknown]
  - Lethargy [Unknown]
  - Hypotension [Unknown]
  - Gastric haemorrhage [Unknown]
  - Metabolic acidosis [Unknown]
